FAERS Safety Report 22347508 (Version 2)
Quarter: 2023Q2

REPORT INFORMATION
  Report Type: Report from Study
  Country: US (occurrence: US)
  Receive Date: 20230521
  Receipt Date: 20230619
  Transmission Date: 20230722
  Serious: Yes (Life-Threatening, Other)
  Sender: FDA-Public Use
  Company Number: US-ABBVIE-4297988

PATIENT
  Sex: Female

DRUGS (6)
  1. HUMIRA [Suspect]
     Active Substance: ADALIMUMAB
     Indication: Uveitis
     Dosage: CITRATE FREE?FORM STRENGTH: 40 MG
     Route: 058
     Dates: start: 2017
  2. ASPIRIN [Suspect]
     Active Substance: ASPIRIN
     Indication: Product used for unknown indication
     Route: 065
  3. DORZOLAMIDE AND TIMOLOL [Concomitant]
     Active Substance: DORZOLAMIDE HYDROCHLORIDE\TIMOLOL MALEATE
     Indication: Glaucoma
     Route: 047
  4. RHOPRESSA [Concomitant]
     Active Substance: NETARSUDIL MESYLATE
     Indication: Glaucoma
     Route: 047
  5. NORETHINDRONE [Concomitant]
     Active Substance: NORETHINDRONE
     Indication: Contraception
     Route: 048
  6. PREDNISOLONE ACETATE [Concomitant]
     Active Substance: PREDNISOLONE ACETATE
     Indication: Uveitis

REACTIONS (15)
  - Postpartum haemorrhage [Recovering/Resolving]
  - Maternal exposure during pregnancy [Unknown]
  - Live birth [Unknown]
  - Abscess soft tissue [Unknown]
  - Infection [Unknown]
  - Abscess drainage [Unknown]
  - Weight increased [Recovering/Resolving]
  - Abscess [Unknown]
  - Discomfort [Unknown]
  - Thrombosis [Recovered/Resolved]
  - Gingival recession [Recovering/Resolving]
  - Intestinal mass [Recovered/Resolved]
  - Pain [Not Recovered/Not Resolved]
  - Alopecia [Recovering/Resolving]
  - Abscess [Unknown]

NARRATIVE: CASE EVENT DATE: 20200101
